FAERS Safety Report 9136901 (Version 1)
Quarter: 2013Q1

REPORT INFORMATION
  Report Type: Spontaneous
  Country: PR (occurrence: PR)
  Receive Date: 20130304
  Receipt Date: 20130304
  Transmission Date: 20140127
  Serious: No
  Sender: FDA-Public Use
  Company Number: PR-ABBOTT-12P-131-0953921-00

PATIENT
  Sex: Male
  Weight: 98.97 kg

DRUGS (4)
  1. ANDROGEL [Suspect]
     Indication: PRODUCT USED FOR UNKNOWN INDICATION
     Dosage: GEL
     Route: 061
  2. COZAAR [Concomitant]
     Indication: HYPERTENSION
     Dosage: EVERYDAY
     Route: 048
  3. ALLOPURINOL [Concomitant]
     Indication: BLOOD URIC ACID ABNORMAL
     Dosage: EVERYDAY AT BEDTIME
     Route: 048
  4. VITAMIN D [Concomitant]
     Indication: VITAMIN SUPPLEMENTATION
     Route: 048

REACTIONS (3)
  - Arthralgia [Unknown]
  - Oedema peripheral [Unknown]
  - Pollakiuria [Unknown]
